FAERS Safety Report 5041042-5 (Version None)
Quarter: 2006Q2

REPORT INFORMATION
  Report Type: 
  Country: None (occurrence: None)
  Receive Date: 20060630
  Receipt Date: 20060630
  Transmission Date: 20061013
  Serious: No
  Sender: FDA-Public Use
  Company Number: None

PATIENT

DRUGS (7)
  1. ADALIMUMAB 40MG/0.8ML [Suspect]
     Indication: RHEUMATOID ARTHRITIS
     Dosage: 40 MG Q 2 WEEKS SQ
     Route: 058
     Dates: start: 20051222, end: 20060404
  2. FOLIC ACID [Concomitant]
  3. HYDROCODONE 5/ ACETAMINOPHEN [Concomitant]
  4. INDOMETHACIN [Concomitant]
  5. NPH INSULIN [Concomitant]
  6. LOVASTATIN [Concomitant]
  7. METHOTREXATE [Concomitant]

REACTIONS (2)
  - INFECTION [None]
  - PALPITATIONS [None]
